FAERS Safety Report 8447313-4 (Version None)
Quarter: 2012Q2

REPORT INFORMATION
  Report Type: 
  Country: None (occurrence: None)
  Receive Date: 20120619
  Receipt Date: 20120613
  Transmission Date: 20120825
  Serious: Yes (Hospitalization, Other)
  Sender: FDA-Public Use
  Company Number: PHHY2012CA015324

PATIENT
  Sex: Female

DRUGS (3)
  1. ZOLEDRONOC ACID [Suspect]
     Indication: OSTEOPOROSIS
     Dosage: UNK UKN, UNK
     Route: 042
     Dates: start: 20090119
  2. ZOLEDRONOC ACID [Suspect]
     Dosage: UNK UKN, UNK
     Route: 042
     Dates: start: 20100413
  3. ZOLEDRONOC ACID [Suspect]
     Dosage: UNK UKN, UNK
     Route: 042
     Dates: start: 20110412

REACTIONS (7)
  - BLOOD SODIUM DECREASED [None]
  - PELVIC FRACTURE [None]
  - CLOSTRIDIAL INFECTION [None]
  - HAEMATOPOIETIC NEOPLASM [None]
  - INGUINAL HERNIA [None]
  - FALL [None]
  - FEMUR FRACTURE [None]
